FAERS Safety Report 4453365-9 (Version None)
Quarter: 2004Q3

REPORT INFORMATION
  Report Type: 
  Country: None (occurrence: None)
  Receive Date: 20040920
  Receipt Date: 20040903
  Transmission Date: 20050211
  Serious: Yes (Other)
  Sender: FDA-Public Use
  Company Number: US-JNJFOC-20040707927

PATIENT
  Sex: Female
  Weight: 78.02 kg

DRUGS (4)
  1. DOXIL [Suspect]
     Indication: BREAST CANCER
     Route: 042
  2. BENADRYL [Concomitant]
     Indication: PROPHYLAXIS
     Route: 042
  3. ALOXI [Concomitant]
     Indication: NAUSEA
     Route: 042
  4. DECADRON [Concomitant]
     Indication: NAUSEA
     Route: 042

REACTIONS (3)
  - FALL [None]
  - PALMAR-PLANTAR ERYTHRODYSAESTHESIA SYNDROME [None]
  - WRIST FRACTURE [None]
